FAERS Safety Report 4440943-6 (Version None)
Quarter: 2004Q3

REPORT INFORMATION
  Report Type: 
  Country: None (occurrence: None)
  Receive Date: 20040728
  Receipt Date: 20040409
  Transmission Date: 20050211
  Serious: No
  Sender: FDA-Public Use
  Company Number: USA040464582

PATIENT
  Age: 52 Year
  Sex: Male
  Weight: 87 kg

DRUGS (3)
  1. STRATTERA [Suspect]
     Indication: ATTENTION DEFICIT/HYPERACTIVITY DISORDER
     Dosage: 180 MG DAY
     Dates: start: 20030101
  2. ADDERALL 10 [Concomitant]
  3. KLONOPIN [Concomitant]

REACTIONS (3)
  - PERIPHERAL COLDNESS [None]
  - PRESCRIBED OVERDOSE [None]
  - RAYNAUD'S PHENOMENON [None]
